FAERS Safety Report 10234831 (Version 1)
Quarter: 2014Q2

REPORT INFORMATION
  Report Type: Spontaneous
  Country: US (occurrence: None)
  Receive Date: 20140610
  Receipt Date: 20140610
  Transmission Date: 20141212
  Serious: Yes (Hospitalization)
  Sender: FDA-Public Use
  Company Number: 54973 AE # 1536

PATIENT
  Age: 10 Month
  Sex: Female

DRUGS (1)
  1. HYLAND^S BABY TEETH TABLETS [Suspect]
     Indication: TEETHING
     Dosage: 2 TABLETS

REACTIONS (4)
  - Apnoea [None]
  - Skin discolouration [None]
  - Convulsion [None]
  - Product quality issue [None]
